FAERS Safety Report 9999678 (Version 2)
Quarter: 2014Q1

REPORT INFORMATION
  Report Type: Spontaneous
  Country: GB (occurrence: BE)
  Receive Date: 20140312
  Receipt Date: 20140325
  Transmission Date: 20141002
  Serious: Yes (Hospitalization)
  Sender: FDA-Public Use
  Company Number: GB-BAYER-2014-035121

PATIENT
  Age: 36 Year
  Sex: Female

DRUGS (8)
  1. AVELOX [Suspect]
     Indication: PRODUCT USED FOR UNKNOWN INDICATION
     Dosage: 400 MG, UNK
     Route: 065
     Dates: start: 20140211, end: 20140220
  2. OSELTAMIVIR [Suspect]
     Indication: INFLUENZA
     Dosage: UNK
     Route: 048
     Dates: start: 20140211
  3. MEDROL [Concomitant]
     Dosage: 16 MG, DAILY
  4. COVERAM [Concomitant]
  5. PANTOPRAZOLE SODIUM [Concomitant]
     Dosage: 40 MG, DAILY
  6. D-VITAL CALCIUM [Concomitant]
  7. KALEORID [Concomitant]
     Dosage: UNK
     Dates: start: 20140221
  8. METHOTREXATE [Concomitant]
     Dosage: UNK
     Dates: start: 1999

REACTIONS (3)
  - Urinary tract infection [Recovered/Resolved]
  - Flank pain [None]
  - Nausea [None]
